FAERS Safety Report 5585745-2 (Version None)
Quarter: 2008Q1

REPORT INFORMATION
  Report Type: 
  Country: None (occurrence: None)
  Receive Date: 20080104
  Receipt Date: 20071221
  Transmission Date: 20080703
  Serious: Yes (Life-Threatening, Hospitalization)
  Sender: FDA-Public Use
  Company Number: 2007P1000644

PATIENT
  Age: 20 Year
  Sex: Male

DRUGS (8)
  1. BUSULFAN (BUSULFAN) [Suspect]
     Indication: STEM CELL TRANSPLANT
     Dosage: 31.2 ML; QD; IV, 41.6 ML; QD; IV, 10.4 ML; QD; IV
     Route: 042
     Dates: start: 20070201, end: 20070201
  2. BUSULFAN (BUSULFAN) [Suspect]
     Indication: STEM CELL TRANSPLANT
     Dosage: 31.2 ML; QD; IV, 41.6 ML; QD; IV, 10.4 ML; QD; IV
     Route: 042
     Dates: start: 20070202, end: 20070204
  3. BUSULFAN (BUSULFAN) [Suspect]
     Indication: STEM CELL TRANSPLANT
     Dosage: 31.2 ML; QD; IV, 41.6 ML; QD; IV, 10.4 ML; QD; IV
     Route: 042
     Dates: start: 20070205, end: 20070205
  4. FILGRASTIM [Concomitant]
  5. VALPROATE SODIUM [Concomitant]
  6. CYCLOPHOSPHAMIDE [Concomitant]
  7. METHOTREXATE [Concomitant]
  8. TACROLIMUS [Concomitant]

REACTIONS (6)
  - ALTERED STATE OF CONSCIOUSNESS [None]
  - DIARRHOEA [None]
  - GASTROINTESTINAL PERFORATION [None]
  - STRESS ULCER [None]
  - THROMBOTIC MICROANGIOPATHY [None]
  - UPPER GASTROINTESTINAL HAEMORRHAGE [None]
